FAERS Safety Report 4902547-8 (Version None)
Quarter: 2006Q1

REPORT INFORMATION
  Report Type: 
  Country: None (occurrence: None)
  Receive Date: 20060202
  Receipt Date: 20060119
  Transmission Date: 20060701
  Serious: Yes (Hospitalization)
  Sender: FDA-Public Use
  Company Number: 2006-DE-00319GD

PATIENT
  Age: 38 Year
  Sex: Female

DRUGS (5)
  1. ISOPROTERENOL [Suspect]
     Indication: CARDIOGENIC SHOCK
     Dosage: 0.08 MCG/KG/MIN, IV
     Route: 042
  2. LORAZEPAM [Suspect]
     Dosage: 30 M, PO
     Route: 048
  3. BETAXOLOL [Suspect]
     Dosage: 5.23 G, PO
     Route: 048
  4. EPINEPHRINE [Suspect]
     Indication: CARDIOGENIC SHOCK
     Dosage: 4 MCG/KG/MIN, IV
     Route: 042
  5. NORADENALINE (NOREPINEPHRINE) [Suspect]
     Indication: CARDIOGENIC SHOCK
     Dosage: 1.8 MCG/KG/MIN, IV
     Route: 042

REACTIONS (3)
  - CARDIAC ARREST [None]
  - CARDIOGENIC SHOCK [None]
  - COMA [None]
